FAERS Safety Report 8989674 (Version 1)
Quarter: 2012Q4

REPORT INFORMATION
  Report Type: 
  Country: CO (occurrence: CO)
  Receive Date: 20121228
  Receipt Date: 20121228
  Transmission Date: 20130627
  Serious: Yes (Other)
  Sender: FDA-Public Use
  Company Number: CO-AMGEN-COLSP2012083300

PATIENT
  Age: 47 Year
  Sex: Female

DRUGS (5)
  1. ENBREL [Suspect]
     Indication: PRODUCT USED FOR UNKNOWN INDICATION
     Dosage: 50 mg, UNK
     Dates: start: 201106, end: 201206
  2. ENBREL [Suspect]
     Dosage: 50 mg, UNK
  3. DULOXETINE [Concomitant]
     Indication: FIBROMYALGIA
     Dosage: 120 mg, qd (2 tablets of 60 mg per day)
     Dates: start: 2010
  4. OMEPRAZOLE [Concomitant]
     Indication: REFLUX GASTRITIS
     Dosage: UNK
     Dates: start: 201204
  5. ACETAMINOPHEN [Concomitant]
     Indication: PAIN
     Dosage: UNK UNK, as necessary

REACTIONS (6)
  - Brain neoplasm [Not Recovered/Not Resolved]
  - Hiatus hernia [Not Recovered/Not Resolved]
  - Arthralgia [Recovered/Resolved]
  - Osteoarthritis [Not Recovered/Not Resolved]
  - Muscular weakness [Not Recovered/Not Resolved]
  - Oedema peripheral [Not Recovered/Not Resolved]
